FAERS Safety Report 21146199 (Version 14)
Quarter: 2023Q4

REPORT INFORMATION
  Report Type: Spontaneous
  Country: US (occurrence: US)
  Receive Date: 20220729
  Receipt Date: 20231116
  Transmission Date: 20240110
  Serious: Yes (Life-Threatening, Hospitalization, Disabling, Other)
  Sender: FDA-Public Use
  Company Number: US-PFIZER INC-202201016700

PATIENT
  Age: 74 Year
  Sex: Female
  Weight: 68.027 kg

DRUGS (3)
  1. METOPROLOL TARTRATE [Suspect]
     Active Substance: METOPROLOL TARTRATE
     Indication: Hypertension
     Dosage: 100 3 TIMES THEN 50 3 TIMES THEN 25 2 TIMES
     Dates: start: 201812, end: 202111
  2. METOPROLOL TARTRATE [Suspect]
     Active Substance: METOPROLOL TARTRATE
     Dosage: 100 MG 3 TAD THEN 50 MG 3 TAD
     Dates: start: 201912, end: 2022
  3. METOPROLOL TARTRATE [Suspect]
     Active Substance: METOPROLOL TARTRATE
     Indication: Hypertension
     Dosage: 25 MG, 3X/DAY
     Route: 048
     Dates: start: 201908, end: 202111

REACTIONS (24)
  - Neuropathy peripheral [Not Recovered/Not Resolved]
  - Weight decreased [Recovered/Resolved]
  - Arthralgia [Recovered/Resolved]
  - Drug ineffective [Not Recovered/Not Resolved]
  - Heart rate decreased [Recovered/Resolved]
  - Alopecia [Recovered/Resolved]
  - Muscle atrophy [Recovered/Resolved]
  - Myalgia [Unknown]
  - Eating disorder [Unknown]
  - Fatigue [Unknown]
  - Nerve injury [Unknown]
  - Arthropathy [Recovered/Resolved]
  - Vision blurred [Recovered/Resolved]
  - Brain fog [Recovered/Resolved]
  - Insomnia [Not Recovered/Not Resolved]
  - Nausea [Recovered/Resolved]
  - Malaise [Recovered/Resolved]
  - Gastrooesophageal reflux disease [Not Recovered/Not Resolved]
  - Loss of personal independence in daily activities [Unknown]
  - Asthenia [Unknown]
  - Dizziness postural [Unknown]
  - Headache [Unknown]
  - Migraine [Unknown]
  - Off label use [Unknown]

NARRATIVE: CASE EVENT DATE: 20190101
